FAERS Safety Report 8882041 (Version 1)
Quarter: 2012Q4

REPORT INFORMATION
  Report Type: Spontaneous
  Country: US (occurrence: None)
  Receive Date: 20121105
  Receipt Date: 20121105
  Transmission Date: 20130627
  Serious: Yes (Hospitalization)
  Sender: FDA-Public Use
  Company Number: None

PATIENT
  Age: 45 Year
  Sex: Male
  Weight: 149.69 kg

DRUGS (1)
  1. METHYLPREDNISOLONE [Suspect]
     Dates: start: 20120701, end: 20120901

REACTIONS (6)
  - Meningitis fungal [None]
  - Hot flush [None]
  - Hypotension [None]
  - Back pain [None]
  - Gastrointestinal disorder [None]
  - Renal impairment [None]
